FAERS Safety Report 7354953-2 (Version None)
Quarter: 2011Q1

REPORT INFORMATION
  Report Type: 
  Country: None (occurrence: None)
  Receive Date: 20110311
  Receipt Date: 20110311
  Transmission Date: 20110831
  Serious: No
  Sender: FDA-Public Use
  Company Number: None

PATIENT
  Age: 63 Year
  Sex: Female
  Weight: 49.4421 kg

DRUGS (1)
  1. CYMBALTA [Suspect]
     Dosage: 30 MG 1 @ BEDTIME P.O.
     Route: 048

REACTIONS (4)
  - NAUSEA [None]
  - VOMITING [None]
  - RETCHING [None]
  - LARYNGITIS [None]
